FAERS Safety Report 9331153 (Version 2)
Quarter: 2013Q2

REPORT INFORMATION
  Report Type: Spontaneous
  Country: FR (occurrence: FR)
  Receive Date: 20130605
  Receipt Date: 20130613
  Transmission Date: 20140414
  Serious: Yes (Hospitalization)
  Sender: FDA-Public Use
  Company Number: PHHY2013FR054961

PATIENT
  Age: 68 Year
  Sex: Female

DRUGS (1)
  1. AMOXICILLIN-CLAVULANIC ACID [Suspect]
     Indication: BRONCHITIS

REACTIONS (18)
  - Drug reaction with eosinophilia and systemic symptoms [Recovered/Resolved]
  - Fulminant type 1 diabetes mellitus [Not Recovered/Not Resolved]
  - Left ventricular dysfunction [Recovered/Resolved]
  - Diabetic ketoacidosis [Recovered/Resolved]
  - Rash pruritic [Recovered/Resolved]
  - Pyrexia [Recovered/Resolved]
  - Vomiting [Recovered/Resolved]
  - Somnolence [Recovered/Resolved]
  - Tachypnoea [Recovered/Resolved]
  - Lymphadenopathy [Recovered/Resolved]
  - Eyelid oedema [Recovered/Resolved]
  - Cheilitis [Recovered/Resolved]
  - Erythema [Recovered/Resolved]
  - Rash maculo-papular [Recovered/Resolved]
  - Conjunctivitis [Recovered/Resolved]
  - Eosinophilia [Recovered/Resolved]
  - Crepitations [Recovered/Resolved]
  - Dyspnoea [Recovered/Resolved]
